FAERS Safety Report 25897600 (Version 1)
Quarter: 2025Q4

REPORT INFORMATION
  Report Type: Spontaneous
  Country: US (occurrence: None)
  Receive Date: 20251007
  Receipt Date: 20251007
  Transmission Date: 20260118
  Serious: No
  Sender: FDA-CTU
  Company Number: None

PATIENT
  Age: 83 Year
  Sex: Female
  Weight: 76.05 kg

DRUGS (14)
  1. LENALIDOMIDE [Suspect]
     Active Substance: LENALIDOMIDE
     Indication: Plasma cell myeloma
     Dosage: FREQUENCY : DAILY;?
     Route: 048
     Dates: start: 20241128
  2. ASPIRIN [Concomitant]
     Active Substance: ASPIRIN
     Dates: start: 20241128
  3. CALCIUM [Concomitant]
     Active Substance: CALCIUM
     Dates: start: 20241128
  4. TYLENOL [Concomitant]
     Active Substance: ACETAMINOPHEN
     Dates: start: 20241128
  5. MAGNESIUM [Concomitant]
     Active Substance: MAGNESIUM
     Dates: start: 20241128
  6. CURCUMIN [Concomitant]
     Active Substance: CURCUMIN
     Dates: start: 20241128
  7. VITAMIN D [Concomitant]
     Active Substance: VITAMIN D NOS
     Dates: start: 20241128
  8. MIRALAX [Concomitant]
     Active Substance: POLYETHYLENE GLYCOL 3350
     Dates: start: 20241128
  9. GINKGO [Concomitant]
     Active Substance: GINKGO
     Dates: start: 20241128
  10. METAMUCIL [Concomitant]
     Active Substance: PLANTAGO SEED
     Dates: start: 20241128
  11. ADVAIR DISKUS [Concomitant]
     Active Substance: FLUTICASONE PROPIONATE\SALMETEROL XINAFOATE
     Dates: start: 20241127
  12. PROTONIX [Concomitant]
     Active Substance: PANTOPRAZOLE SODIUM
     Dates: start: 20241128
  13. SPIRIVA [Concomitant]
     Active Substance: TIOTROPIUM BROMIDE MONOHYDRATE
     Dates: start: 20241128
  14. VITAMIN C [Concomitant]
     Active Substance: ASCORBIC ACID
     Dates: start: 20241128

REACTIONS (2)
  - COVID-19 [None]
  - Pneumonia [None]

NARRATIVE: CASE EVENT DATE: 20250623
